FAERS Safety Report 5074356-3 (Version None)
Quarter: 2006Q3

REPORT INFORMATION
  Report Type: 
  Country: None (occurrence: None)
  Receive Date: 20060803
  Receipt Date: 20060717
  Transmission Date: 20061208
  Serious: Yes (Hospitalization)
  Sender: FDA-Public Use
  Company Number: CH200607003219

PATIENT
  Age: 23 Year
  Sex: Male

DRUGS (1)
  1. FLUCTINE ( FLUOXETINE HYDROCHLORIDE)  CAPSULE [Suspect]
     Indication: DEPRESSION
     Dosage: 20 MG, DAILY (1/D), ORAL
     Route: 048
     Dates: start: 20000101

REACTIONS (5)
  - DISORIENTATION [None]
  - GASTROINTESTINAL DISORDER [None]
  - MYOCLONUS [None]
  - NAUSEA [None]
  - TREMOR [None]
